FAERS Safety Report 18067311 (Version 1)
Quarter: 2020Q3

REPORT INFORMATION
  Report Type: Spontaneous
  Country: LU (occurrence: LU)
  Receive Date: 20200724
  Receipt Date: 20200724
  Transmission Date: 20201103
  Serious: Yes (Hospitalization, Disabling)
  Sender: FDA-Public Use
  Company Number: LU-JNJFOC-20200531317

PATIENT
  Age: 43 Year
  Sex: Male
  Weight: 102 kg

DRUGS (1)
  1. REMICADE [Suspect]
     Active Substance: INFLIXIMAB
     Indication: AXIAL SPONDYLOARTHRITIS
     Dosage: WEEK 0, 2, 6, THEN 8 WEEKS.
     Route: 042
     Dates: start: 201909, end: 202003

REACTIONS (1)
  - Lewis-Sumner syndrome [Recovering/Resolving]

NARRATIVE: CASE EVENT DATE: 20200313
